FAERS Safety Report 5793236-9 (Version None)
Quarter: 2008Q2

REPORT INFORMATION
  Report Type: 
  Country: None (occurrence: None)
  Receive Date: 20080627
  Receipt Date: 20080617
  Transmission Date: 20081010
  Serious: Yes (Hospitalization)
  Sender: FDA-Public Use
  Company Number: DE-AMGEN-UK284601

PATIENT
  Sex: Male

DRUGS (3)
  1. PANITUMUMAB [Suspect]
     Indication: SQUAMOUS CELL CARCINOMA
     Route: 065
  2. FLUOROURACIL [Suspect]
  3. CISPLATIN [Suspect]

REACTIONS (2)
  - BLOOD CREATININE INCREASED [None]
  - URINARY RETENTION [None]
